FAERS Safety Report 10110961 (Version 1)
Quarter: 2014Q2

REPORT INFORMATION
  Report Type: Spontaneous
  Country: JP (occurrence: JP)
  Receive Date: 20140425
  Receipt Date: 20140425
  Transmission Date: 20141212
  Serious: Yes (Hospitalization)
  Sender: FDA-Public Use
  Company Number: JP-JNJFOC-20140415737

PATIENT
  Sex: 0

DRUGS (1)
  1. INFLIXIMAB, RECOMBINANT [Suspect]
     Indication: KAWASAKI^S DISEASE
     Route: 042

REACTIONS (6)
  - Hepatic function abnormal [Recovered/Resolved]
  - Urinary tract infection [Recovered/Resolved]
  - Arthritis [Recovering/Resolving]
  - Drug eruption [Recovered/Resolved]
  - Drug ineffective for unapproved indication [Unknown]
  - Therapeutic response changed [Unknown]
